FAERS Safety Report 21652200 (Version 3)
Quarter: 2022Q4

REPORT INFORMATION
  Report Type: Spontaneous
  Country: JP (occurrence: None)
  Receive Date: 20221128
  Receipt Date: 20221230
  Transmission Date: 20230113
  Serious: Yes (Death, Hospitalization, Other)
  Sender: FDA-Public Use
  Company Number: 2022A389420

PATIENT
  Age: 72 Year
  Sex: Male
  Weight: 79 kg

DRUGS (4)
  1. IMFINZI [Suspect]
     Active Substance: DURVALUMAB
     Indication: Non-small cell lung cancer
     Route: 042
     Dates: start: 20220315, end: 20220921
  2. CLOBETASOL PROPIONATE [Concomitant]
     Active Substance: CLOBETASOL PROPIONATE
     Indication: Dermatitis contact
     Dosage: OPTIMAL DOSE, TO HANDS, ARMS, AND NECK
     Route: 062
     Dates: start: 20220530, end: 20221113
  3. LOCOID [Concomitant]
     Active Substance: HYDROCORTISONE BUTYRATE
     Indication: Dermatitis contact
     Dosage: OPTIMAL DOSE
     Route: 062
     Dates: start: 20220520, end: 20221113
  4. OLOPATADINE HYDROCHLORIDE [Concomitant]
     Active Substance: OLOPATADINE HYDROCHLORIDE
     Indication: Dermatitis contact
     Route: 048
     Dates: start: 20220530, end: 20221113

REACTIONS (5)
  - Hypothyroidism [Fatal]
  - Rhabdomyolysis [Fatal]
  - Secondary adrenocortical insufficiency [Fatal]
  - Cardio-respiratory arrest [Fatal]
  - Headache [Unknown]

NARRATIVE: CASE EVENT DATE: 20220325
